FAERS Safety Report 5090915-6 (Version None)
Quarter: 2006Q3

REPORT INFORMATION
  Report Type: 
  Country: None (occurrence: None)
  Receive Date: 20060823
  Receipt Date: 20060807
  Transmission Date: 20061208
  Serious: Yes (Hospitalization)
  Sender: FDA-Public Use
  Company Number: US200608002121

PATIENT
  Sex: Male
  Weight: 63.5 kg

DRUGS (1)
  1. ZYPREXA [Suspect]
     Dates: start: 19971001

REACTIONS (6)
  - CARDIAC DISORDER [None]
  - DIABETES MELLITUS [None]
  - HYPERTENSION [None]
  - METABOLIC DISORDER [None]
  - VISION BLURRED [None]
  - WEIGHT DECREASED [None]
